FAERS Safety Report 25404808 (Version 2)
Quarter: 2025Q2

REPORT INFORMATION
  Report Type: Spontaneous
  Country: US (occurrence: US)
  Receive Date: 20250606
  Receipt Date: 20250613
  Transmission Date: 20250716
  Serious: No
  Sender: BAUSCH AND LOMB
  Company Number: US-BAUSCHBL-2025BNL009813

PATIENT
  Age: 76 Year
  Sex: Female

DRUGS (13)
  1. MIEBO [Suspect]
     Active Substance: PERFLUOROHEXYLOCTANE
     Indication: Dry eye
     Route: 047
     Dates: start: 202505
  2. MIEBO [Suspect]
     Active Substance: PERFLUOROHEXYLOCTANE
     Indication: Cataract operation
  3. MIEBO [Suspect]
     Active Substance: PERFLUOROHEXYLOCTANE
     Indication: Post procedural complication
  4. PROLENSA [Concomitant]
     Active Substance: BROMFENAC SODIUM
     Indication: Eye irritation
  5. PROLENSA [Concomitant]
     Active Substance: BROMFENAC SODIUM
     Indication: Eye inflammation
  6. MINOCYCLINE [Concomitant]
     Active Substance: MINOCYCLINE HYDROCHLORIDE
     Indication: Eye irritation
  7. MINOCYCLINE [Concomitant]
     Active Substance: MINOCYCLINE HYDROCHLORIDE
     Indication: Eye inflammation
  8. ROSUVASTATIN [Concomitant]
     Active Substance: ROSUVASTATIN
     Indication: Eye irritation
  9. ROSUVASTATIN [Concomitant]
     Active Substance: ROSUVASTATIN
     Indication: Eye inflammation
  10. SYNTHROID [Concomitant]
     Active Substance: LEVOTHYROXINE SODIUM
     Indication: Eye irritation
  11. SYNTHROID [Concomitant]
     Active Substance: LEVOTHYROXINE SODIUM
     Indication: Eye inflammation
  12. ASPIRIN [Concomitant]
     Active Substance: ASPIRIN
     Indication: Eye irritation
  13. ASPIRIN [Concomitant]
     Active Substance: ASPIRIN
     Indication: Eye inflammation

REACTIONS (13)
  - Photophobia [Unknown]
  - Burning sensation [Unknown]
  - Cough [Unknown]
  - Therapy interrupted [Unknown]
  - Product use issue [Unknown]
  - Product dispensing issue [Unknown]
  - Insurance issue [Unknown]
  - Product packaging quantity issue [Unknown]
  - Circumstance or information capable of leading to medication error [Unknown]
  - Product use complaint [Unknown]
  - Product knowledge deficit [Unknown]
  - Wrong technique in product usage process [Unknown]
  - Product complaint [Unknown]

NARRATIVE: CASE EVENT DATE: 20250501
